FAERS Safety Report 4549012-8 (Version None)
Quarter: 2005Q1

REPORT INFORMATION
  Report Type: 
  Country: None (occurrence: None)
  Receive Date: 20041227
  Receipt Date: 20041011
  Transmission Date: 20050727
  Serious: No
  Sender: FDA-Public Use
  Company Number: 04P-163-0276868-00

PATIENT
  Age: 42 Year
  Sex: Female
  Weight: 104 kg

DRUGS (6)
  1. HUMIRA [Suspect]
     Indication: RHEUMATOID ARTHRITIS
     Dosage: 40 MG, 1 IN 2 WK, SUBCUTANEOUS
     Route: 058
     Dates: start: 20030101, end: 20040601
  2. METHOTREXATE SODIUM [Concomitant]
  3. CELECOXIB [Concomitant]
  4. CYMBALT [Concomitant]
  5. LEXAPRO [Concomitant]
  6. LORAZEPAM [Concomitant]

REACTIONS (1)
  - AXILLARY MASS [None]
